FAERS Safety Report 17202224 (Version 3)
Quarter: 2022Q1

REPORT INFORMATION
  Report Type: Spontaneous
  Country: US (occurrence: US)
  Receive Date: 20191226
  Receipt Date: 20220207
  Transmission Date: 20220423
  Serious: No
  Sender: FDA-Public Use
  Company Number: US-PFIZER INC-2019548867

PATIENT
  Age: 76 Year
  Sex: Female
  Weight: 70.31 kg

DRUGS (7)
  1. XELJANZ XR [Suspect]
     Active Substance: TOFACITINIB CITRATE
     Indication: Rheumatoid arthritis
     Dosage: 11 MG, 1X/DAY
     Dates: start: 201912
  2. GABAPENTIN [Concomitant]
     Active Substance: GABAPENTIN
     Indication: Neuropathy peripheral
     Dosage: 300 MG, 1X/DAY (AT NIGHT)
  3. CYMBALTA [Concomitant]
     Active Substance: DULOXETINE HYDROCHLORIDE
     Indication: Nervous system disorder
     Dosage: 60 MG, 1X/DAY (AT BEDTIME)
  4. SUPER VITAMIN B COMPLEX [Concomitant]
     Indication: Nervous system disorder
     Dosage: 1 DF, 1X/DAY (AT NIGHT)
  5. LOSARTAN [Concomitant]
     Active Substance: LOSARTAN
     Indication: Hypertension
     Dosage: 100 MG, 1X/DAY
  6. AMLODIPINE BESYLATE [Concomitant]
     Active Substance: AMLODIPINE BESYLATE
     Indication: Hypertension
     Dosage: 2.5 MG, 3X/DAY
  7. METHOTREXATE [Concomitant]
     Active Substance: METHOTREXATE
     Dosage: 2.5 MG

REACTIONS (3)
  - Drug ineffective [Unknown]
  - Musculoskeletal disorder [Unknown]
  - Dental caries [Unknown]

NARRATIVE: CASE EVENT DATE: 20200101
